FAERS Safety Report 7626798-7 (Version None)
Quarter: 2011Q3

REPORT INFORMATION
  Report Type: 
  Country: None (occurrence: None)
  Receive Date: 20110713
  Receipt Date: 20110711
  Transmission Date: 20111222
  Serious: Yes (Hospitalization, Other)
  Sender: FDA-Public Use
  Company Number: 201110042

PATIENT
  Sex: Male

DRUGS (1)
  1. LIORESAL [Suspect]
     Indication: MUSCLE SPASTICITY
     Dosage: 94.96 MCG, DAILY, INRATHECAL
     Route: 037

REACTIONS (8)
  - MUSCLE SPASTICITY [None]
  - HEADACHE [None]
  - DEVICE DISLOCATION [None]
  - IMPLANT SITE INFECTION [None]
  - CONSTIPATION [None]
  - PHOTOPHOBIA [None]
  - VOMITING [None]
  - IMPLANT SITE SWELLING [None]
